FAERS Safety Report 7799118-5 (Version None)
Quarter: 2011Q4

REPORT INFORMATION
  Report Type: 
  Country: None (occurrence: None)
  Receive Date: 20111006
  Receipt Date: 20111003
  Transmission Date: 20120403
  Serious: Yes (Death)
  Sender: FDA-Public Use
  Company Number: JP-PFIZER INC-2011214341

PATIENT
  Age: 86 Year
  Sex: Male

DRUGS (1)
  1. ZYVOX [Suspect]
     Indication: PNEUMONIA STAPHYLOCOCCAL
     Dosage: 1200 MG, 1X/DAY
     Route: 041
     Dates: start: 20110819, end: 20110824

REACTIONS (2)
  - PLATELET COUNT DECREASED [None]
  - DISSEMINATED INTRAVASCULAR COAGULATION [None]
